FAERS Safety Report 5108050-7 (Version None)
Quarter: 2006Q3

REPORT INFORMATION
  Report Type: 
  Country: None (occurrence: None)
  Receive Date: 20060915
  Receipt Date: 20060601
  Transmission Date: 20061208
  Serious: Yes (Hospitalization)
  Sender: FDA-Public Use
  Company Number: 226257

PATIENT
  Age: 52 Year
  Sex: Female

DRUGS (4)
  1. AVASTIN [Suspect]
     Indication: BREAST CANCER
     Dosage: 10 MG/KG, Q2W, INTRAVENOUS
     Route: 042
     Dates: start: 20060317
  2. DOXORUBICIN HCL [Suspect]
     Indication: BREAST CANCER
     Dosage: 10 MG/KG, Q2W, INTRAVENOUS
     Route: 042
     Dates: start: 20060317
  3. CYCLOPHOSPHAMIDE [Suspect]
     Indication: BREAST CANCER
     Dosage: 600 MG/M2, Q2W, INTRAVENOUS
     Route: 042
     Dates: start: 20060317
  4. NEUPOGEN [Suspect]
     Indication: BREAST CANCER
     Dosage: 5 AUG/KG, SUBCUTANEOUS
     Route: 058
     Dates: start: 20060317

REACTIONS (11)
  - ANOREXIA [None]
  - ANXIETY [None]
  - DEHYDRATION [None]
  - DEPRESSION [None]
  - DIARRHOEA [None]
  - FEBRILE NEUTROPENIA [None]
  - MUSCULAR WEAKNESS [None]
  - PERIRECTAL ABSCESS [None]
  - RASH [None]
  - TREMOR [None]
  - URINARY TRACT INFECTION [None]
